FAERS Safety Report 8061184 (Version 3)
Quarter: 2014Q1

REPORT INFORMATION
  Report Type: Spontaneous
  Country: US (occurrence: US)
  Receive Date: 20110729
  Receipt Date: 20140103
  Transmission Date: 20141002
  Serious: Yes (Death, Hospitalization)
  Sender: FDA-Public Use
  Company Number: US-GLAXOSMITHKLINE-A0938689A

PATIENT
  Age: 71 Year
  Sex: Male

DRUGS (1)
  1. AVANDIA [Suspect]
     Indication: DIABETES MELLITUS
     Route: 048
     Dates: start: 200101, end: 200209

REACTIONS (4)
  - Cerebral haemorrhage [Fatal]
  - Cerebrovascular accident [Unknown]
  - Cardiovascular disorder [Unknown]
  - Transient ischaemic attack [Unknown]
